FAERS Safety Report 4714623-3 (Version None)
Quarter: 2005Q3

REPORT INFORMATION
  Report Type: 
  Country: None (occurrence: None)
  Receive Date: 20050714
  Receipt Date: 20050630
  Transmission Date: 20060218
  Serious: Yes (Death)
  Sender: FDA-Public Use
  Company Number: 2005S1005758

PATIENT
  Age: 70 Year
  Sex: Female

DRUGS (5)
  1. CLOZAPINE [Suspect]
     Indication: SCHIZOPHRENIA
     Dosage: 100 MG; HS; PO; 75 MG; QAM; PO
     Route: 048
     Dates: start: 20000101, end: 20050501
  2. CLOZAPINE [Suspect]
     Indication: SCHIZOPHRENIA
     Dosage: 100 MG; HS; PO; 75 MG; QAM; PO
     Route: 048
     Dates: start: 20000101, end: 20050501
  3. NEOSTIGMINE BROMIDE [Concomitant]
  4. FENTANYL [Concomitant]
  5. MORPHINE SULFATE [Concomitant]

REACTIONS (1)
  - DEATH [None]
